FAERS Safety Report 4950803-X (Version None)
Quarter: 2006Q1

REPORT INFORMATION
  Report Type: 
  Country: None (occurrence: None)
  Receive Date: 20060321
  Receipt Date: 20060321
  Transmission Date: 20060701
  Serious: Yes (Life-Threatening, Other)
  Sender: FDA-Public Use
  Company Number: None

PATIENT
  Age: 49 Year
  Sex: Female
  Weight: 49.8957 kg

DRUGS (3)
  1. ZELNORM [Suspect]
     Indication: CONSTIPATION
     Dosage: 6 MG. TWICE DAILY PO
     Route: 048
     Dates: start: 20060312, end: 20060314
  2. ZELNORM [Suspect]
     Indication: IRRITABLE BOWEL SYNDROME
     Dosage: 6 MG. TWICE DAILY PO
     Route: 048
     Dates: start: 20060312, end: 20060314
  3. ZELNORM [Suspect]
     Indication: PAIN
     Dosage: 6 MG. TWICE DAILY PO
     Route: 048
     Dates: start: 20060312, end: 20060314

REACTIONS (2)
  - DEPRESSION [None]
  - SUICIDAL IDEATION [None]
